FAERS Safety Report 21777789 (Version 1)
Quarter: 2022Q4

REPORT INFORMATION
  Report Type: Spontaneous
  Country: CN (occurrence: CN)
  Receive Date: 20221226
  Receipt Date: 20221226
  Transmission Date: 20230113
  Serious: Yes (Other)
  Sender: FDA-Public Use
  Company Number: None

PATIENT
  Age: 17 Year
  Sex: Male
  Weight: 53.5 kg

DRUGS (10)
  1. CYCLOPHOSPHAMIDE [Suspect]
     Active Substance: CYCLOPHOSPHAMIDE
     Indication: Acute lymphocytic leukaemia
     Dosage: 318 MG, QD (DILUTED WITH 250 ML OF SODIUM CHLORIDE INJECTION)
     Route: 041
     Dates: start: 20221118, end: 20221120
  2. CYCLOPHOSPHAMIDE [Suspect]
     Active Substance: CYCLOPHOSPHAMIDE
     Indication: B-cell type acute leukaemia
  3. SODIUM CHLORIDE [Suspect]
     Active Substance: SODIUM CHLORIDE
     Indication: Medication dilution
     Dosage: 250 ML, QD (USED TO DILUTE 318 MG CYCLOPHOSPHAMIDE)
     Route: 041
     Dates: start: 20221118, end: 20221120
  4. SODIUM CHLORIDE [Suspect]
     Active Substance: SODIUM CHLORIDE
     Dosage: 90 ML, QD (USED TO DILUTE 10 MG METHOTREXATE)
     Route: 037
     Dates: start: 20221117, end: 20221117
  5. SODIUM CHLORIDE [Suspect]
     Active Substance: SODIUM CHLORIDE
     Dosage: 90 ML, QD (USED TO DILUTE 35 MG OF CYTARABINE HYDROCHLORIDE)
     Route: 037
     Dates: start: 20221117, end: 20221117
  6. SODIUM CHLORIDE [Suspect]
     Active Substance: SODIUM CHLORIDE
     Dosage: 250 ML, QD (USED TO DILUTE 3200 MG CYTARABINE HYDROCHLORIDE), ROUTE: INTRA-PUMP INJECTION
     Route: 050
     Dates: start: 20221121, end: 20221121
  7. METHOTREXATE [Suspect]
     Active Substance: METHOTREXATE
     Indication: Acute lymphocytic leukaemia
     Dosage: 10 MG, QD (DILUTED WITH 90 ML OF  SODIUM CHLORIDE INJECTION)
     Route: 037
     Dates: start: 20221117, end: 20221117
  8. METHOTREXATE [Suspect]
     Active Substance: METHOTREXATE
     Indication: B-cell type acute leukaemia
  9. CYTARABINE HYDROCHLORIDE [Suspect]
     Active Substance: CYTARABINE HYDROCHLORIDE
     Indication: Acute lymphocytic leukaemia
     Dosage: 35 MG, QD (DILUTED WITH 90 ML OF  SODIUM CHLORIDE INJECTION)
     Route: 037
     Dates: start: 20221117, end: 20221117
  10. CYTARABINE HYDROCHLORIDE [Suspect]
     Active Substance: CYTARABINE HYDROCHLORIDE
     Indication: B-cell type acute leukaemia
     Dosage: 3200 MG, QD (DILUTED WITH 250ML OF SODIUM CHLORIDE INJECTION), ROUTE: INTRA-PUMP INJECTION
     Route: 050
     Dates: start: 20221121, end: 20221121

REACTIONS (2)
  - Myelosuppression [Recovering/Resolving]
  - Platelet count decreased [Recovering/Resolving]

NARRATIVE: CASE EVENT DATE: 20221130
